FAERS Safety Report 8545472-6 (Version None)
Quarter: 2012Q3

REPORT INFORMATION
  Report Type: 
  Country: None (occurrence: None)
  Receive Date: 20120727
  Receipt Date: 20111109
  Transmission Date: 20120928
  Serious: No
  Sender: FDA-Public Use
  Company Number: US-ASTRAZENECA-2011SE67803

PATIENT
  Age: 47 Year
  Sex: Female
  Weight: 74.4 kg

DRUGS (4)
  1. SEROQUEL XR [Suspect]
     Indication: BIPOLAR DISORDER
     Route: 048
     Dates: start: 20110501
  2. NEURONTIN [Concomitant]
  3. TEGRETOL [Concomitant]
  4. EFFEXOR [Concomitant]

REACTIONS (1)
  - NASOPHARYNGITIS [None]
